FAERS Safety Report 17874804 (Version 1)
Quarter: 2020Q2

REPORT INFORMATION
  Report Type: Spontaneous
  Country: US (occurrence: US)
  Receive Date: 20200609
  Receipt Date: 20200609
  Transmission Date: 20200714
  Serious: Yes (Other)
  Sender: FDA-Public Use
  Company Number: US-ENDO PHARMACEUTICALS INC-2019-105495

PATIENT
  Age: 4 Year
  Sex: Male
  Weight: 27.1 kg

DRUGS (2)
  1. SUPPRELIN LA [Suspect]
     Active Substance: HISTRELIN ACETATE
     Indication: PRECOCIOUS PUBERTY
     Dosage: 50 MG, ONCE A YEAR; RIGHT UPPER INNER ARM
     Route: 058
     Dates: start: 20190425
  2. SUPPRELIN LA [Suspect]
     Active Substance: HISTRELIN ACETATE
     Dosage: 50 MG, ONCE A YEAR; LEFT ARM
     Route: 058
     Dates: start: 20190628

REACTIONS (6)
  - Implant site induration [Not Recovered/Not Resolved]
  - Device expulsion [Recovered/Resolved]
  - Implant site swelling [Recovering/Resolving]
  - Implant site erythema [Not Recovered/Not Resolved]
  - Implant site bruising [Recovering/Resolving]
  - Implant site infection [Recovering/Resolving]

NARRATIVE: CASE EVENT DATE: 20190508
